FAERS Safety Report 23454893 (Version 1)
Quarter: 2024Q1

REPORT INFORMATION
  Report Type: Spontaneous
  Country: GB (occurrence: GB)
  Receive Date: 20240130
  Receipt Date: 20240130
  Transmission Date: 20240410
  Serious: Yes (Other)
  Sender: FDA-Public Use
  Company Number: GB-SA-SAC20240124000108

PATIENT
  Sex: Male

DRUGS (6)
  1. AUBAGIO [Suspect]
     Active Substance: TERIFLUNOMIDE
     Indication: Multiple sclerosis
     Dosage: 14 MG, QD
     Route: 048
     Dates: start: 2015
  2. NAPROXEN [Concomitant]
     Active Substance: NAPROXEN
  3. BACLOFEN [Concomitant]
     Active Substance: BACLOFEN
  4. ATORVASTATIN [Concomitant]
     Active Substance: ATORVASTATIN
  5. OMEPRAZOLE [Concomitant]
     Active Substance: OMEPRAZOLE
  6. MIRABEGRON [Concomitant]
     Active Substance: MIRABEGRON

REACTIONS (1)
  - Secondary progressive multiple sclerosis [Unknown]
